FAERS Safety Report 13625270 (Version 1)
Quarter: 2017Q2

REPORT INFORMATION
  Report Type: Spontaneous
  Country: US (occurrence: US)
  Receive Date: 20170608
  Receipt Date: 20170608
  Transmission Date: 20170830
  Serious: Yes (Hospitalization, Other)
  Sender: FDA-Public Use
  Company Number: US-ASTRAZENECA-2017SE59042

PATIENT
  Sex: Male
  Weight: 72.6 kg

DRUGS (10)
  1. SEROQUEL [Suspect]
     Active Substance: QUETIAPINE FUMARATE
     Indication: SCHIZOPHRENIA
     Route: 048
     Dates: start: 2002
  2. SEROQUEL [Suspect]
     Active Substance: QUETIAPINE FUMARATE
     Indication: SCHIZOPHRENIA
     Route: 048
  3. VITAMIN D [Concomitant]
     Active Substance: CHOLECALCIFEROL
     Route: 048
     Dates: start: 2017
  4. SEROQUEL [Suspect]
     Active Substance: QUETIAPINE FUMARATE
     Indication: BIPOLAR DISORDER
     Route: 048
     Dates: start: 2002
  5. OMEPRAZOLE. [Suspect]
     Active Substance: OMEPRAZOLE
     Indication: GASTROOESOPHAGEAL REFLUX DISEASE
     Route: 048
  6. SEROQUEL [Suspect]
     Active Substance: QUETIAPINE FUMARATE
     Indication: BIPOLAR DISORDER
     Dosage: GENERIC SEROQUEL
     Route: 048
     Dates: start: 201701
  7. SEROQUEL [Suspect]
     Active Substance: QUETIAPINE FUMARATE
     Indication: SCHIZOPHRENIA
     Route: 048
  8. SEROQUEL [Suspect]
     Active Substance: QUETIAPINE FUMARATE
     Indication: BIPOLAR DISORDER
     Route: 048
  9. SEROQUEL [Suspect]
     Active Substance: QUETIAPINE FUMARATE
     Indication: BIPOLAR DISORDER
     Route: 048
  10. SEROQUEL [Suspect]
     Active Substance: QUETIAPINE FUMARATE
     Indication: SCHIZOPHRENIA
     Dosage: GENERIC SEROQUEL
     Route: 048
     Dates: start: 201701

REACTIONS (29)
  - Feeling abnormal [Unknown]
  - Histrionic personality disorder [Unknown]
  - Weight increased [Unknown]
  - Choking [Unknown]
  - Skin atrophy [Unknown]
  - Abdominal pain upper [Unknown]
  - Red blood cell count decreased [Unknown]
  - Vitamin D decreased [Unknown]
  - Chest pain [Unknown]
  - Malaise [Unknown]
  - Thinking abnormal [Unknown]
  - Anger [Unknown]
  - Delusion [Recovered/Resolved]
  - Adverse drug reaction [Unknown]
  - Skeletal injury [Unknown]
  - Neck pain [Unknown]
  - Product use issue [Unknown]
  - Bipolar disorder [Unknown]
  - Irritability [Unknown]
  - Headache [Unknown]
  - Abdominal discomfort [Unknown]
  - Flatulence [Unknown]
  - Seizure [Unknown]
  - Anaesthesia [Unknown]
  - Pyrexia [Unknown]
  - Off label use [Not Recovered/Not Resolved]
  - Pneumonia [Unknown]
  - Somnolence [Unknown]
  - Schizophrenia [Unknown]
